FAERS Safety Report 13697257 (Version 1)
Quarter: 2017Q2

REPORT INFORMATION
  Report Type: Spontaneous
  Country: US (occurrence: US)
  Receive Date: 20170628
  Receipt Date: 20170628
  Transmission Date: 20170830
  Serious: Yes (Other)
  Sender: FDA-Public Use
  Company Number: US-CELGENEUS-USA-20170606382

PATIENT
  Sex: Male

DRUGS (4)
  1. THALOMID [Suspect]
     Active Substance: THALIDOMIDE
     Dosage: 50  MILLIGRAM
     Route: 048
     Dates: start: 20140917
  2. THALOMID [Suspect]
     Active Substance: THALIDOMIDE
     Dosage: 100MG
     Route: 048
     Dates: start: 200603
  3. THALOMID [Suspect]
     Active Substance: THALIDOMIDE
     Dosage: 50 MILLIGRAM
     Route: 048
     Dates: start: 200810
  4. THALOMID [Suspect]
     Active Substance: THALIDOMIDE
     Indication: PLASMA CELL MYELOMA IN REMISSION
     Dosage: 100- 200 MILLIGRAM
     Route: 048
     Dates: start: 200507

REACTIONS (1)
  - Adverse drug reaction [Not Recovered/Not Resolved]
